FAERS Safety Report 22088520 (Version 2)
Quarter: 2023Q2

REPORT INFORMATION
  Report Type: Spontaneous
  Country: IT (occurrence: IT)
  Receive Date: 20230313
  Receipt Date: 20230412
  Transmission Date: 20230722
  Serious: Yes (Life-Threatening, Other)
  Sender: FDA-Public Use
  Company Number: IT-MLMSERVICE-2023022341233251

PATIENT
  Age: 6 Decade
  Sex: Female
  Weight: 72 kg

DRUGS (46)
  1. CISPLATIN [Suspect]
     Active Substance: CISPLATIN
     Indication: Diffuse large B-cell lymphoma
     Dosage: TWO BRIDGING COURSES, 25 MG/M2, DAYS 1-4, ROUTE IV
     Route: 042
  2. CYTARABINE [Suspect]
     Active Substance: CYTARABINE
     Indication: Diffuse large B-cell lymphoma
     Dosage: 200 MG/M2/12 H DAYS -6,-5,-4,-3 ROUTE IV
     Route: 042
     Dates: start: 2020, end: 2020
  3. DOXORUBICIN [Suspect]
     Active Substance: DOXORUBICIN
     Indication: Diffuse large B-cell lymphoma stage IV
     Dosage: DOSAGE TEXT:	FOUR CYCLES, DOXORUBICIN 50 MG/M2 DAY 1 VIA ROUTE IV EVERY 14 DAYS
     Route: 042
     Dates: start: 2019
  4. ETOPOSIDE [Suspect]
     Active Substance: ETOPOSIDE
     Indication: Diffuse large B-cell lymphoma stage IV
     Dosage: 100 MG/M2/12 H DAYS -6,-5,-4,-3, ROUTE IV
     Route: 042
     Dates: start: 2020, end: 2020
  5. MITOXANTRONE [Suspect]
     Active Substance: MITOXANTRONE HYDROCHLORIDE
     Indication: Diffuse large B-cell lymphoma stage IV
     Dosage: ONE COURSE OF CONSOLIDATION CHEMOTHERAPY, 8 MG/M2/DIE, DAYS 1-3, ROUTE IV
     Route: 042
  6. DEXAMETHASONE [Suspect]
     Active Substance: DEXAMETHASONE
     Indication: Diffuse large B-cell lymphoma
     Dosage: ONE COURSE OF CONSOLIDATION CHEMOTHERAPY, 4 MG/M2/12 H, DAYS 1-3, ROUTE IV
     Route: 042
  7. PREDNISOLONE [Suspect]
     Active Substance: PREDNISOLONE
     Indication: Diffuse large B-cell lymphoma
     Dosage: FOUR CYCLES, 100 MG DAYS 1-5 VIA ROUTE ORAL EVERY 14 DAYS
     Route: 048
     Dates: start: 2019
  8. FOTEMUSTINE [Suspect]
     Active Substance: FOTEMUSTINE
     Indication: Diffuse large B-cell lymphoma
     Dosage: 300 MG/M2 DAY-7, ROUTE IV
     Route: 042
     Dates: start: 2020, end: 2020
  9. CYCLOPHOSPHAMIDE [Suspect]
     Active Substance: CYCLOPHOSPHAMIDE
     Indication: Diffuse large B-cell lymphoma
     Dosage: FOUR CYCLES, 750 MG/M2 DAY 1 VIA ROUTE IV EVERY 14 DAYS
     Route: 042
     Dates: start: 2019
  10. MELPHALAN [Suspect]
     Active Substance: MELPHALAN
     Indication: Diffuse large B-cell lymphoma
     Dosage: 140 MG/M2 DAY -2, ROUTE IV
     Route: 042
     Dates: start: 2020, end: 2020
  11. RITUXIMAB [Suspect]
     Active Substance: RITUXIMAB
     Indication: Diffuse large B-cell lymphoma stage IV
     Dosage: TWO BRIDGING COURSES, 375 MG/M2, DAY 0, ROUTE IV CUMULATIVE DOSE; 01 CYCLICAL
     Route: 042
  12. VINCRISTINE [Suspect]
     Active Substance: VINCRISTINE
     Indication: Diffuse large B-cell lymphoma
     Dosage: FOUR CYCLES, 1.4 MG/M2 DAY 1 VIA ROUTE IV EVERY 14 DAYS
     Route: 042
     Dates: start: 2019
  13. METHYLPREDNISOLONE [Suspect]
     Active Substance: METHYLPREDNISOLONE
     Indication: Diffuse large B-cell lymphoma recurrent
     Dosage: TWO BRIDGING COURSES, 500 MG, DAYS 1-5, ROUTE IV
     Route: 042
  14. ETOPOSIDE [Suspect]
     Active Substance: ETOPOSIDE
     Indication: Diffuse large B-cell lymphoma recurrent
     Dosage: TWO BRIDGING COURSES, 40 MG/M2, DAYS 1-4, ROUTE IV
     Route: 042
  15. ETOPOSIDE [Suspect]
     Active Substance: ETOPOSIDE
     Indication: Diffuse large B-cell lymphoma stage IV
     Dosage: TWO BRIDGING COURSES, 40 MG/M2, DAYS 1-4, ROUTE IV
     Route: 042
  16. RITUXIMAB [Suspect]
     Active Substance: RITUXIMAB
     Indication: Diffuse large B-cell lymphoma
     Dosage: FOUR CYCLES, 375 MG/M2 DAY 1 VIA ROUTE IV EVERY 14 DAYS
     Route: 042
     Dates: start: 2019
  17. RITUXIMAB [Suspect]
     Active Substance: RITUXIMAB
     Indication: Diffuse large B-cell lymphoma stage IV
     Dosage: FOUR CYCLES, 375 MG/M2 DAY 1 VIA ROUTE IV EVERY 14 DAYS
     Route: 042
     Dates: start: 2019
  18. CYTARABINE [Suspect]
     Active Substance: CYTARABINE
     Indication: Bone marrow conditioning regimen
     Dosage: 200 MG/M2/12 H DAYS -6,-5,-4,-3 ROUTE IV
     Route: 042
     Dates: start: 2020, end: 2020
  19. CYTARABINE [Suspect]
     Active Substance: CYTARABINE
     Indication: Diffuse large B-cell lymphoma stage IV
     Dosage: 200 MG/M2/12 H DAYS -6,-5,-4,-3 ROUTE IV
     Route: 042
     Dates: start: 2020, end: 2020
  20. ETOPOSIDE [Suspect]
     Active Substance: ETOPOSIDE
     Indication: Diffuse large B-cell lymphoma
     Dosage: TWO BRIDGING COURSES, 40 MG/M2, DAYS 1-4, ROUTE IV
     Route: 042
  21. CYTARABINE [Suspect]
     Active Substance: CYTARABINE
     Indication: Diffuse large B-cell lymphoma stage IV
     Dosage: CUMULATIVE DOSE: 01 CYCLICAL.?ONE COURSE OF HIGH DOSE CYTARABINE
  22. DOXORUBICIN [Suspect]
     Active Substance: DOXORUBICIN
     Indication: Diffuse large B-cell lymphoma
     Dosage: CUMULATIVE DOSE: 04 CYCLICAL.?FOUR CYCLES
     Dates: start: 2019
  23. CYTARABINE [Suspect]
     Active Substance: CYTARABINE
     Indication: Diffuse large B-cell lymphoma
     Dosage: ONE COURSE OF CONSOLIDATION CHEMOTHERAPY, 2000 MG/M2/12 H, DAYS 1-3, ROUTE IV
     Route: 042
  24. CYTARABINE [Suspect]
     Active Substance: CYTARABINE
     Indication: Diffuse large B-cell lymphoma stage IV
     Dosage: ONE COURSE OF CONSOLIDATION CHEMOTHERAPY, 2000 MG/M2/12 H, DAYS 1-3, ROUTE IV
     Route: 042
  25. FOTEMUSTINE [Suspect]
     Active Substance: FOTEMUSTINE
     Indication: Diffuse large B-cell lymphoma stage IV
     Dates: start: 2020, end: 2020
  26. MELPHALAN [Suspect]
     Active Substance: MELPHALAN
     Indication: Diffuse large B-cell lymphoma stage IV
     Dates: start: 2020, end: 2020
  27. METHYLPREDNISOLONE [Suspect]
     Active Substance: METHYLPREDNISOLONE
     Indication: Diffuse large B-cell lymphoma
     Dosage: TWO BRIDGING COURSES
  28. METHYLPREDNISOLONE [Suspect]
     Active Substance: METHYLPREDNISOLONE
     Indication: Diffuse large B-cell lymphoma stage IV
     Dosage: TWO BRIDGING COURSES
  29. CYTARABINE [Suspect]
     Active Substance: CYTARABINE
     Indication: Diffuse large B-cell lymphoma
     Dosage: CUMULATIVE DOSE: 01 CYCLICAL.?ONE COURSE OF CONSOLIDATION CHEMOTHERAPY .
  30. CYTARABINE [Suspect]
     Active Substance: CYTARABINE
     Indication: Diffuse large B-cell lymphoma stage IV
     Dosage: CUMULATIVE DOSE: 01 CYCLICAL.?ONE COURSE OF CONSOLIDATION CHEMOTHERAPY.
  31. CYTARABINE [Suspect]
     Active Substance: CYTARABINE
     Indication: Diffuse large B-cell lymphoma
     Dosage: CUMULATIVE DOSE: 01 CYCLICAL.?ONE COURSE OF HIGH DOSE CYTARABINE
  32. CYTARABINE [Suspect]
     Active Substance: CYTARABINE
     Indication: Diffuse large B-cell lymphoma
     Dosage: TWO BRIDGING COURSES.?CUMULATIVE DOSE: 02 CYCLICAL.
     Dates: start: 2020, end: 2020
  33. CYTARABINE [Suspect]
     Active Substance: CYTARABINE
     Indication: Diffuse large B-cell lymphoma recurrent
     Dosage: TWO BRIDGING COURSES.?CUMULATIVE DOSE: 02 CYCLICAL.
  34. VINCRISTINE [Suspect]
     Active Substance: VINCRISTINE
     Indication: Diffuse large B-cell lymphoma stage IV
     Dosage: FOUR CYCLES, 1.4 MG/M2 DAY 1 VIA ROUTE IV EVERY 14 DAYS
     Route: 042
     Dates: start: 2019
  35. ETOPOSIDE [Suspect]
     Active Substance: ETOPOSIDE
     Indication: Diffuse large B-cell lymphoma
     Dosage: 100 MG/M2/12 H DAYS -6,-5,-4,-3, ROUTE IV
     Route: 042
     Dates: start: 2020, end: 2020
  36. ETOPOSIDE [Suspect]
     Active Substance: ETOPOSIDE
     Indication: Bone marrow conditioning regimen
     Dosage: 100 MG/M2/12 H DAYS -6,-5,-4,-3, ROUTE IV
     Route: 042
     Dates: start: 2020, end: 2020
  37. CISPLATIN [Suspect]
     Active Substance: CISPLATIN
     Indication: Diffuse large B-cell lymphoma recurrent
     Dosage: TWO BRIDGING COURSES, 25 MG/M2, DAYS 1-4, ROUTE IV
     Route: 042
  38. CISPLATIN [Suspect]
     Active Substance: CISPLATIN
     Indication: Diffuse large B-cell lymphoma stage IV
     Dosage: TWO BRIDGING COURSES, 25 MG/M2, DAYS 1-4, ROUTE IV
     Route: 042
  39. RITUXIMAB [Suspect]
     Active Substance: RITUXIMAB
     Indication: Diffuse large B-cell lymphoma
     Dosage: TWO BRIDGING COURSES, 375 MG/M2, DAY 0, ROUTE IV CUMULATIVE DOSE; 01 CYCLICAL
     Route: 042
  40. RITUXIMAB [Suspect]
     Active Substance: RITUXIMAB
     Indication: Diffuse large B-cell lymphoma recurrent
     Dosage: TWO BRIDGING COURSES, 375 MG/M2, DAY 0, ROUTE IV CUMULATIVE DOSE; 01 CYCLICAL
     Route: 042
  41. MITOXANTRONE [Suspect]
     Active Substance: MITOXANTRONE HYDROCHLORIDE
     Indication: Diffuse large B-cell lymphoma
     Dosage: ONE COURSE OF CONSOLIDATION CHEMOTHERAPY, 8 MG/M2/DIE, DAYS 1-3, ROUTE IV
     Route: 042
  42. PREDNISOLONE [Suspect]
     Active Substance: PREDNISOLONE
     Indication: Diffuse large B-cell lymphoma stage IV
     Dosage: FOUR CYCLES, 100 MG DAYS 1-5 VIA ROUTE ORAL EVERY 14 DAYS
     Route: 048
     Dates: start: 2019
  43. DEXAMETHASONE [Suspect]
     Active Substance: DEXAMETHASONE
     Indication: Diffuse large B-cell lymphoma stage IV
     Dosage: ONE COURSE OF CONSOLIDATION CHEMOTHERAPY, 4 MG/M2/12 H, DAYS 1-3, ROUTE IV
     Route: 042
  44. FOTEMUSTINE [Suspect]
     Active Substance: FOTEMUSTINE
     Indication: Bone marrow conditioning regimen
     Dates: start: 2020, end: 2020
  45. CYCLOPHOSPHAMIDE [Suspect]
     Active Substance: CYCLOPHOSPHAMIDE
     Indication: Diffuse large B-cell lymphoma stage IV
     Dosage: FOUR CYCLES, 750 MG/M2 DAY 1 VIA ROUTE IV EVERY 14 DAYS
     Route: 042
     Dates: start: 2019
  46. MELPHALAN [Suspect]
     Active Substance: MELPHALAN
     Indication: Bone marrow conditioning regimen
     Dates: start: 2020, end: 2020

REACTIONS (4)
  - Myelodysplastic syndrome [Recovered/Resolved]
  - RUNX1 gene mutation [Unknown]
  - Chromosomal deletion [Unknown]
  - Off label use [Unknown]

NARRATIVE: CASE EVENT DATE: 20211201
